FAERS Safety Report 16460971 (Version 1)
Quarter: 2019Q2

REPORT INFORMATION
  Report Type: Spontaneous
  Country: IT (occurrence: IT)
  Receive Date: 20190621
  Receipt Date: 20190621
  Transmission Date: 20190711
  Serious: Yes (Other)
  Sender: FDA-Public Use
  Company Number: IT-ALKEM LABORATORIES LIMITED-IT-ALKEM-2019-02970

PATIENT
  Age: 50 Year
  Sex: Female

DRUGS (2)
  1. CAPECITABINE. [Suspect]
     Active Substance: CAPECITABINE
     Dosage: UNK, DOSE REDUCED
     Route: 065
  2. CAPECITABINE. [Suspect]
     Active Substance: CAPECITABINE
     Indication: CHEMOTHERAPY
     Dosage: 2500 MILLIGRAM/SQ. METER, QD, IN TWO DIVIDED DOSES
     Route: 065

REACTIONS (1)
  - Neuropathy peripheral [Recovered/Resolved]
